FAERS Safety Report 4284033-4 (Version None)
Quarter: 2004Q1

REPORT INFORMATION
  Report Type: 
  Country: None (occurrence: None)
  Receive Date: 20040130
  Receipt Date: 20040122
  Transmission Date: 20041129
  Serious: Yes (Other)
  Sender: FDA-Public Use
  Company Number: 2002-08-3076

PATIENT
  Sex: Female
  Weight: 90.7194 kg

DRUGS (6)
  1. CORICIDIN D SRT [Suspect]
     Indication: NASOPHARYNGITIS
     Dosage: ORAL
     Route: 048
  2. DEXATRIM [Concomitant]
  3. ELAVIL [Concomitant]
  4. MEVACOR [Concomitant]
  5. ZOCOR [Concomitant]
  6. ANTIHYPERTENSIVE AGENT (NOS) [Concomitant]

REACTIONS (3)
  - BLOOD PRESSURE INCREASED [None]
  - CEREBROVASCULAR ACCIDENT [None]
  - HEADACHE [None]
